FAERS Safety Report 6790562-1 (Version None)
Quarter: 2010Q2

REPORT INFORMATION
  Report Type: 
  Country: None (occurrence: None)
  Receive Date: 20100624
  Receipt Date: 20100616
  Transmission Date: 20101027
  Serious: Yes (Other)
  Sender: FDA-Public Use
  Company Number: ES-ROCHE-710328

PATIENT
  Age: 31 Year
  Sex: Male

DRUGS (3)
  1. PEGASYS [Suspect]
     Indication: HEPATITIS C
     Route: 058
     Dates: start: 20100401
  2. LEXATIN [Suspect]
     Indication: NERVOUSNESS
     Route: 048
     Dates: start: 20100611, end: 20100612
  3. VASTAT [Suspect]
     Indication: DEPRESSION
     Dosage: ONE AT NIGHT
     Route: 048
     Dates: start: 20100611, end: 20100612

REACTIONS (6)
  - ANXIETY [None]
  - APATHY [None]
  - FATIGUE [None]
  - FLUSHING [None]
  - LOSS OF CONSCIOUSNESS [None]
  - WHITE BLOOD CELL COUNT DECREASED [None]
